FAERS Safety Report 4625680-7 (Version None)
Quarter: 2005Q2

REPORT INFORMATION
  Report Type: 
  Country: None (occurrence: None)
  Receive Date: 20050404
  Receipt Date: 20050323
  Transmission Date: 20051028
  Serious: Yes (Hospitalization, Other)
  Sender: FDA-Public Use
  Company Number: DK-JNJFOC-20050300785

PATIENT
  Age: 45 Year
  Sex: Male

DRUGS (1)
  1. INFLIXIMAB [Suspect]
     Indication: ANKYLOSING SPONDYLITIS
     Dosage: TOTAL OF FOUR INFUSIONS
     Route: 042

REACTIONS (1)
  - PULMONARY TUBERCULOSIS [None]
